FAERS Safety Report 6387957-7 (Version None)
Quarter: 2009Q4

REPORT INFORMATION
  Report Type: 
  Country: None (occurrence: None)
  Receive Date: 20091005
  Receipt Date: 20090923
  Transmission Date: 20100525
  Serious: Yes (Hospitalization, Other)
  Sender: FDA-Public Use
  Company Number: BR-PFIZER INC-2009273141

PATIENT
  Age: 72 Year

DRUGS (5)
  1. SPIRONOLACTONE [Suspect]
  2. AMIODARONE [Concomitant]
     Dosage: UNK
  3. ISOSORBIDE MONONITRATE [Concomitant]
     Dosage: UNK
  4. FUROSEMIDE [Concomitant]
     Dosage: UNK
  5. LOSARTAN [Concomitant]
     Dosage: UNK

REACTIONS (5)
  - ANAEMIA [None]
  - HYPERKALAEMIA [None]
  - METABOLIC ACIDOSIS [None]
  - PARALYSIS [None]
  - RENAL FAILURE [None]
